FAERS Safety Report 7720448-7 (Version None)
Quarter: 2011Q3

REPORT INFORMATION
  Report Type: 
  Country: None (occurrence: None)
  Receive Date: 20110831
  Receipt Date: 20110629
  Transmission Date: 20111222
  Serious: No
  Sender: FDA-Public Use
  Company Number: US-GLAXOSMITHKLINE-A0933891A

PATIENT
  Age: 58 Year
  Sex: Male

DRUGS (8)
  1. LOTREL [Concomitant]
  2. OXYCODONE HCL [Concomitant]
  3. CELEBREX [Concomitant]
  4. OXYCONTIN [Concomitant]
  5. EPIVIR-HBV [Suspect]
     Indication: ANTIVIRAL PROPHYLAXIS
     Dosage: 100MG PER DAY
     Route: 048
     Dates: start: 20100601
  6. NEXIUM [Concomitant]
  7. ASPIRIN [Concomitant]
  8. XANAX [Concomitant]

REACTIONS (1)
  - PICA [None]
